FAERS Safety Report 9163673 (Version 1)
Quarter: 2013Q1

REPORT INFORMATION
  Report Type: Spontaneous
  Country: FR (occurrence: FR)
  Receive Date: 20130314
  Receipt Date: 20130314
  Transmission Date: 20140127
  Serious: Yes (Life-Threatening, Hospitalization)
  Sender: FDA-Public Use
  Company Number: FR-ELI_LILLY_AND_COMPANY-FR201303003431

PATIENT
  Sex: Male

DRUGS (3)
  1. GEMZAR [Suspect]
     Indication: TRANSITIONAL CELL CARCINOMA
     Dosage: UNK
     Route: 042
     Dates: start: 20121205, end: 20121227
  2. CARBOPLATINE [Concomitant]
     Indication: TRANSITIONAL CELL CARCINOMA
     Dosage: UNK
     Dates: start: 20121205, end: 20121227
  3. FLU VAX [Concomitant]
     Dosage: UNK, SINGLE

REACTIONS (1)
  - Guillain-Barre syndrome [Not Recovered/Not Resolved]
